FAERS Safety Report 18439633 (Version 7)
Quarter: 2021Q2

REPORT INFORMATION
  Report Type: Report from Study
  Country: CA (occurrence: CA)
  Receive Date: 20201029
  Receipt Date: 20210616
  Transmission Date: 20210717
  Serious: Yes (Hospitalization, Other)
  Sender: FDA-Public Use
  Company Number: NVSC2020CA267415

PATIENT
  Age: 48 Year
  Sex: Female

DRUGS (2)
  1. MAYZENT [Suspect]
     Active Substance: SIPONIMOD
     Dosage: 2 DF, QD (ON DAY 3)
     Route: 048
     Dates: end: 20210401
  2. MAYZENT [Suspect]
     Active Substance: SIPONIMOD
     Indication: SECONDARY PROGRESSIVE MULTIPLE SCLEROSIS
     Dosage: UNK
     Route: 048
     Dates: start: 20200928, end: 20210401

REACTIONS (19)
  - Hypoaesthesia [Unknown]
  - Hypokinesia [Unknown]
  - Ecchymosis [Unknown]
  - Raynaud^s phenomenon [Unknown]
  - Tremor [Unknown]
  - Osteomyelitis [Unknown]
  - Diarrhoea [Unknown]
  - Arthralgia [Unknown]
  - Muscular weakness [Unknown]
  - Wound [Unknown]
  - Insomnia [Unknown]
  - Fatigue [Unknown]
  - Muscle spasms [Unknown]
  - Decreased appetite [Unknown]
  - Dizziness [Unknown]
  - Multiple sclerosis relapse [Recovering/Resolving]
  - Decubitus ulcer [Unknown]
  - Nausea [Unknown]
  - Asthenia [Unknown]

NARRATIVE: CASE EVENT DATE: 20200928
